FAERS Safety Report 16907877 (Version 1)
Quarter: 2019Q4

REPORT INFORMATION
  Report Type: Spontaneous
  Country: US (occurrence: US)
  Receive Date: 20191011
  Receipt Date: 20191011
  Transmission Date: 20200122
  Serious: Yes (Death, Hospitalization, Other)
  Sender: FDA-Public Use
  Company Number: US-GLAXOSMITHKLINE-US2019GSK181399

PATIENT
  Age: 28 Year
  Sex: Male

DRUGS (2)
  1. DEPAKOTE [Suspect]
     Active Substance: DIVALPROEX SODIUM
     Indication: DEPRESSION
     Dosage: UNK
  2. BUPROPION XR [Suspect]
     Active Substance: BUPROPION
     Indication: DEPRESSION
     Dosage: 9000 MG, SINGLE (30 X 300 MG PILLS)
     Route: 048

REACTIONS (16)
  - Completed suicide [Fatal]
  - Cardiac failure [Unknown]
  - Cardiac arrest [Unknown]
  - Electrocardiogram QRS complex prolonged [Unknown]
  - Neurotoxicity [Fatal]
  - Hypotension [Unknown]
  - Pulseless electrical activity [Unknown]
  - Conduction disorder [Unknown]
  - Status epilepticus [Unknown]
  - Toxicity to various agents [Fatal]
  - Lethargy [Unknown]
  - Bradycardia [Unknown]
  - Intentional overdose [Unknown]
  - Cardiotoxicity [Fatal]
  - Neurological decompensation [Unknown]
  - Electrocardiogram QT prolonged [Unknown]
